FAERS Safety Report 7395209-1 (Version None)
Quarter: 2011Q2

REPORT INFORMATION
  Report Type: 
  Country: None (occurrence: None)
  Receive Date: 20110405
  Receipt Date: 20100304
  Transmission Date: 20111010
  Serious: Yes (Hospitalization, Other)
  Sender: FDA-Public Use
  Company Number: US-BAYER-201017539NA

PATIENT
  Sex: Male
  Weight: 104.31 kg

DRUGS (19)
  1. MIDODRINE HYDROCHLORIDE [Concomitant]
  2. LISINOPRIL [Concomitant]
     Dosage: 10 MG, UNK
     Route: 048
     Dates: start: 20010914
  3. ANCEF [Concomitant]
     Indication: CELLULITIS
  4. LASIX [Concomitant]
     Dosage: 40 MG, UNK
     Route: 048
     Dates: start: 19831122
  5. TRASYLOL [Suspect]
     Indication: CORONARY ARTERY BYPASS
     Dates: start: 20040328
  6. ZESTRIL [Concomitant]
     Dosage: 10 MG, UNK
     Route: 048
     Dates: start: 20011012
  7. KEFLEX [Concomitant]
     Dosage: 500 MG, UNK
     Route: 048
     Dates: start: 20040921
  8. ALDACTONE [Concomitant]
     Dosage: 25 MG, UNK
     Route: 048
     Dates: start: 20041129
  9. VANCOMYCIN [Concomitant]
  10. ZAROXOLYN [Concomitant]
  11. LEVAQUIN [Concomitant]
  12. LOVENOX [Concomitant]
     Dosage: UNK UNK, BID
     Route: 058
     Dates: start: 20040830
  13. AUGMENTIN [Concomitant]
  14. COUMADIN [Concomitant]
     Dosage: 4 MG, UNK
     Route: 048
     Dates: start: 19930415
  15. ZOLPIDEM [Concomitant]
  16. ZITHROMAX [Concomitant]
  17. AMOXICILLIN [Concomitant]
     Dosage: 500 MG, UNK
     Route: 048
     Dates: start: 20041123
  18. DOXYCYCLINE [Concomitant]
  19. UNASYN [Concomitant]
     Indication: CELLULITIS

REACTIONS (6)
  - PAIN [None]
  - EMOTIONAL DISTRESS [None]
  - ANXIETY [None]
  - RENAL FAILURE [None]
  - UNEVALUABLE EVENT [None]
  - INJURY [None]
